FAERS Safety Report 12767175 (Version 2)
Quarter: 2016Q3

REPORT INFORMATION
  Report Type: Spontaneous
  Country: BE (occurrence: BE)
  Receive Date: 20160921
  Receipt Date: 20160927
  Transmission Date: 20161109
  Serious: Yes (Other)
  Sender: FDA-Public Use
  Company Number: BE-JNJFOC-20160913574

PATIENT

DRUGS (3)
  1. INFLIXIMAB, RECOMBINANT [Suspect]
     Active Substance: INFLIXIMAB
     Indication: CROHN^S DISEASE
     Dosage: WEEK 0, 2 AND 6 FOLLOWED BY AT LEAST TWO??ADDITIONAL INFUSIONS AT WEEK 14 AND WEEK 22
     Route: 042
  2. AZATHIOPRINE. [Concomitant]
     Active Substance: AZATHIOPRINE
     Route: 065
  3. METHOTREXATE. [Concomitant]
     Active Substance: METHOTREXATE
     Route: 065

REACTIONS (8)
  - Therapeutic response decreased [Unknown]
  - Infusion related reaction [Unknown]
  - Arthropathy [Unknown]
  - Skin reaction [Unknown]
  - Drug specific antibody present [Unknown]
  - Neoplasm malignant [Unknown]
  - Infection [Unknown]
  - Drug level decreased [Unknown]
